FAERS Safety Report 4443726-6 (Version None)
Quarter: 2004Q3

REPORT INFORMATION
  Report Type: 
  Country: None (occurrence: None)
  Receive Date: 20040908
  Receipt Date: 20040830
  Transmission Date: 20050211
  Serious: Yes (Hospitalization)
  Sender: FDA-Public Use
  Company Number: PHEH2004US09492

PATIENT
  Age: 47 Year
  Sex: Female

DRUGS (5)
  1. ZELNORM [Suspect]
     Indication: IRRITABLE BOWEL SYNDROME
     Dosage: 6 MG, BID
     Dates: start: 20030301, end: 20030701
  2. ZELNORM [Suspect]
     Dosage: 6 MG, BID
     Route: 048
     Dates: start: 20031201
  3. SERZONE [Concomitant]
     Indication: DEPRESSION
     Dosage: 150 MG, QD
     Route: 048
  4. PREVACID [Concomitant]
     Indication: DUODENAL ULCER
     Dosage: UNK, PRN
  5. CELEBREX [Concomitant]
     Dosage: UNK, PRN

REACTIONS (2)
  - COLECTOMY TOTAL [None]
  - DRUG INEFFECTIVE [None]
